FAERS Safety Report 6596536-8 (Version None)
Quarter: 2010Q1

REPORT INFORMATION
  Report Type: 
  Country: None (occurrence: None)
  Receive Date: 20100223
  Receipt Date: 20100212
  Transmission Date: 20100710
  Serious: Yes (Other)
  Sender: FDA-Public Use
  Company Number: US-SANOFI-AVENTIS-2010SA001749

PATIENT
  Age: 54 Year
  Sex: Male
  Weight: 88.45 kg

DRUGS (2)
  1. LANTUS [Suspect]
     Dosage: DOSE:40 UNIT(S)
     Route: 058
     Dates: start: 20091001
  2. ORAL ANTIDIABETICS [Concomitant]

REACTIONS (4)
  - MALAISE [None]
  - PNEUMONIA [None]
  - WEIGHT DECREASED [None]
  - WEIGHT INCREASED [None]
